FAERS Safety Report 9889482 (Version 2)
Quarter: 2014Q4

REPORT INFORMATION
  Report Type: Spontaneous
  Country: US (occurrence: US)
  Receive Date: 20140211
  Receipt Date: 20141008
  Transmission Date: 20150529
  Serious: Yes (Hospitalization, Other)
  Sender: FDA-Public Use
  Company Number: US-009507513-1402USA005044

PATIENT
  Sex: Female
  Weight: 61.22 kg

DRUGS (1)
  1. NUVARING [Suspect]
     Active Substance: ETHINYL ESTRADIOL\ETONOGESTREL
     Indication: CONTRACEPTION
     Dosage: 0.120MG/0.015MG DAILY
     Route: 067
     Dates: start: 2004, end: 2006

REACTIONS (8)
  - Thrombocytopenia [Unknown]
  - Peripheral venous disease [Unknown]
  - Disseminated intravascular coagulation [Unknown]
  - Pulmonary embolism [Unknown]
  - Viral upper respiratory tract infection [Unknown]
  - Back pain [Recovered/Resolved]
  - Sinus congestion [Unknown]
  - Abdominal pain lower [Recovered/Resolved]

NARRATIVE: CASE EVENT DATE: 20060417
